FAERS Safety Report 15170035 (Version 3)
Quarter: 2018Q3

REPORT INFORMATION
  Report Type: Spontaneous
  Country: US (occurrence: US)
  Receive Date: 20180720
  Receipt Date: 20180917
  Transmission Date: 20181010
  Serious: No
  Sender: FDA-Public Use
  Company Number: US-PFIZER INC-2018291479

PATIENT
  Sex: Female

DRUGS (1)
  1. EUCRISA [Suspect]
     Active Substance: CRISABOROLE
     Indication: DERMATITIS ATOPIC
     Dosage: UNK, (APPLY A THIN FILM OF OINTMENT OVER THE AFFECTED SKIN; APPLY TO AFFECTED SKIN AREA)
     Route: 061

REACTIONS (3)
  - Skin burning sensation [Recovered/Resolved]
  - Skin irritation [Unknown]
  - Pruritus [Recovered/Resolved]
